FAERS Safety Report 16918183 (Version 1)
Quarter: 2019Q4

REPORT INFORMATION
  Report Type: Spontaneous
  Country: US (occurrence: US)
  Receive Date: 20191015
  Receipt Date: 20191015
  Transmission Date: 20200122
  Serious: Yes (Other)
  Sender: FDA-Public Use
  Company Number: US-ACCORD-157457

PATIENT
  Age: 64 Year
  Sex: Female
  Weight: 62 kg

DRUGS (3)
  1. ACICLOVIR [Concomitant]
     Active Substance: ACYCLOVIR
  2. BICALUTAMIDE ACCORD [Suspect]
     Active Substance: BICALUTAMIDE
     Indication: BREAST CANCER
     Dosage: DOSAGE WAS INCREASED 50 MG/DAY UP TO APPROXIMATELY 150 MG/DAY
     Route: 048
     Dates: start: 20190925, end: 20190929
  3. ATORVASTATIN [Concomitant]
     Active Substance: ATORVASTATIN

REACTIONS (5)
  - Acute hepatic failure [Not Recovered/Not Resolved]
  - Off label use [Unknown]
  - Transaminases increased [Not Recovered/Not Resolved]
  - Blood bilirubin increased [Not Recovered/Not Resolved]
  - Platelet count decreased [Not Recovered/Not Resolved]

NARRATIVE: CASE EVENT DATE: 20190926
